FAERS Safety Report 21748798 (Version 2)
Quarter: 2023Q1

REPORT INFORMATION
  Report Type: Spontaneous
  Country: JP (occurrence: JP)
  Receive Date: 20221219
  Receipt Date: 20230329
  Transmission Date: 20230418
  Serious: Yes (Death, Hospitalization)
  Sender: FDA-Public Use
  Company Number: JP-ELI_LILLY_AND_COMPANY-JP202212008525

PATIENT
  Age: 86 Year
  Sex: Male

DRUGS (18)
  1. TADALAFIL [Suspect]
     Active Substance: TADALAFIL
     Indication: Pulmonary arterial hypertension
     Dosage: 40 MG, DAILY
     Route: 065
     Dates: end: 20200827
  2. UPTRAVI [Suspect]
     Active Substance: SELEXIPAG
     Indication: Pulmonary arterial hypertension
     Dosage: 0.2 MG, BID
     Route: 048
     Dates: start: 20171005, end: 20171011
  3. UPTRAVI [Suspect]
     Active Substance: SELEXIPAG
     Dosage: 0.4 UNK
     Route: 048
     Dates: start: 20171012, end: 20171018
  4. UPTRAVI [Suspect]
     Active Substance: SELEXIPAG
     Dosage: 1.2 UNK
     Route: 048
     Dates: start: 20171019, end: 20171025
  5. UPTRAVI [Suspect]
     Active Substance: SELEXIPAG
     Dosage: 0.8 UNK
     Route: 048
     Dates: start: 20171026, end: 20171101
  6. UPTRAVI [Suspect]
     Active Substance: SELEXIPAG
     Dosage: 1 UNK
     Route: 048
     Dates: start: 20171102, end: 20171108
  7. UPTRAVI [Suspect]
     Active Substance: SELEXIPAG
     Dosage: 1.2 MG
     Route: 048
     Dates: start: 20171109, end: 20171112
  8. UPTRAVI [Suspect]
     Active Substance: SELEXIPAG
     Dosage: 1 UNK
     Route: 048
     Dates: start: 20171113, end: 20180920
  9. UPTRAVI [Suspect]
     Active Substance: SELEXIPAG
     Dosage: 1.2 UNK
     Route: 048
     Dates: start: 20180921, end: 20190108
  10. UPTRAVI [Suspect]
     Active Substance: SELEXIPAG
     Dosage: 1.4 UNK
     Route: 048
     Dates: start: 20190109, end: 20190125
  11. UPTRAVI [Suspect]
     Active Substance: SELEXIPAG
     Dosage: 1.6 UNK
     Route: 048
     Dates: start: 20190126, end: 20200827
  12. OPSUMIT [Concomitant]
     Active Substance: MACITENTAN
     Indication: Pulmonary arterial hypertension
     Dosage: 10 MG, DAILY
     Route: 065
     Dates: end: 20200827
  13. AZOSEMIDE [Concomitant]
     Active Substance: AZOSEMIDE
     Indication: Cardiac failure
     Dosage: 30 MG, DAILY
     Route: 065
     Dates: end: 20200827
  14. AMLODIPINE [Concomitant]
     Active Substance: AMLODIPINE BESYLATE
     Indication: Hypertension
     Dosage: 5 MG, DAILY
     Route: 065
     Dates: end: 20171018
  15. EPLERENONE [Concomitant]
     Active Substance: EPLERENONE
     Indication: Cardiac failure
     Dosage: 50 MG, DAILY
     Route: 065
     Dates: end: 20200827
  16. ATORVASTATIN [Concomitant]
     Active Substance: ATORVASTATIN
     Indication: Dyslipidaemia
     Dosage: 10 MG, DAILY
     Route: 065
     Dates: end: 20200827
  17. NEXIUM [Concomitant]
     Active Substance: ESOMEPRAZOLE MAGNESIUM
     Indication: Gastrooesophageal reflux disease
     Dosage: 20 MG, DAILY
     Route: 065
     Dates: end: 20200827
  18. WARFARIN [Concomitant]
     Active Substance: WARFARIN
     Indication: Prophylaxis
     Dosage: 2.75 MG, DAILY
     Route: 065
     Dates: end: 20200424

REACTIONS (4)
  - Pulmonary arterial hypertension [Fatal]
  - Brain natriuretic peptide increased [Not Recovered/Not Resolved]
  - Platelet count decreased [Not Recovered/Not Resolved]
  - Headache [Recovering/Resolving]

NARRATIVE: CASE EVENT DATE: 20171110
